FAERS Safety Report 5643595-2 (Version None)
Quarter: 2008Q1

REPORT INFORMATION
  Report Type: 
  Country: None (occurrence: None)
  Receive Date: 20080228
  Receipt Date: 20080220
  Transmission Date: 20080703
  Serious: Yes (Hospitalization, Other)
  Sender: FDA-Public Use
  Company Number: US-PFIZER INC-2007031547

PATIENT
  Sex: Female
  Weight: 49 kg

DRUGS (1)
  1. CELEBREX [Suspect]
     Indication: BACK PAIN

REACTIONS (5)
  - BLINDNESS [None]
  - DEPRESSION [None]
  - FALL [None]
  - LIMB INJURY [None]
  - TRANSIENT ISCHAEMIC ATTACK [None]
